FAERS Safety Report 23574045 (Version 1)
Quarter: 2024Q1

REPORT INFORMATION
  Report Type: Report from Study
  Country: BR (occurrence: BR)
  Receive Date: 20240228
  Receipt Date: 20240228
  Transmission Date: 20240410
  Serious: Yes (Hospitalization, Other)
  Sender: FDA-Public Use
  Company Number: BR-CELLTRION INC.-2024BR004526

PATIENT

DRUGS (2)
  1. INFLIXIMAB [Suspect]
     Active Substance: INFLIXIMAB
     Indication: Ankylosing spondylitis
     Dosage: 4 AMPOULES EVERY 60 DAYS
     Route: 042
     Dates: start: 20230512
  2. DULOXETINE [Concomitant]
     Active Substance: DULOXETINE
     Indication: Ankylosing spondylitis
     Dosage: 1 PILL A DAY; START DATE: 4 YEARS
     Route: 048

REACTIONS (5)
  - Hysterectomy [Recovering/Resolving]
  - Joint swelling [Recovering/Resolving]
  - Arthralgia [Recovering/Resolving]
  - Tachycardia [Recovering/Resolving]
  - Intentional dose omission [Recovering/Resolving]

NARRATIVE: CASE EVENT DATE: 20240125
